FAERS Safety Report 5474537-0 (Version None)
Quarter: 2007Q3

REPORT INFORMATION
  Report Type: 
  Country: None (occurrence: None)
  Receive Date: 20070928
  Receipt Date: 20070917
  Transmission Date: 20080115
  Serious: Yes (Hospitalization)
  Sender: FDA-Public Use
  Company Number: 144-C5013-06111240

PATIENT
  Age: 55 Year
  Sex: Female
  Weight: 70.7 kg

DRUGS (5)
  1. CC-5013 (LENALIDOMIDE) (CAPSULES) [Suspect]
     Indication: MULTIPLE MYELOMA
     Dosage: 25 MG, QD, ORAL
     Route: 048
     Dates: start: 20040512
  2. DEXAMETHASONE TAB [Suspect]
     Indication: MULTIPLE MYELOMA
  3. HEPARIN [Concomitant]
  4. AMOXICILLIN PLUS CLAVULANICS [Concomitant]
  5. ACETAMINOPHEN [Concomitant]

REACTIONS (1)
  - CHOLELITHIASIS [None]
